FAERS Safety Report 7692513-4 (Version None)
Quarter: 2011Q3

REPORT INFORMATION
  Report Type: 
  Country: None (occurrence: None)
  Receive Date: 20110819
  Receipt Date: 20110816
  Transmission Date: 20111222
  Serious: Yes (Death, Hospitalization)
  Sender: FDA-Public Use
  Company Number: MX-BRISTOL-MYERS SQUIBB COMPANY-15980527

PATIENT
  Age: 79 Year
  Sex: Female

DRUGS (1)
  1. IXEMPRYA FOR INJ 45 MG [Suspect]
     Dates: start: 20110803

REACTIONS (5)
  - DIARRHOEA [None]
  - MALAISE [None]
  - PYREXIA [None]
  - DEATH [None]
  - DEHYDRATION [None]
